FAERS Safety Report 13762741 (Version 2)
Quarter: 2017Q3

REPORT INFORMATION
  Report Type: Spontaneous
  Country: CN (occurrence: CN)
  Receive Date: 20170718
  Receipt Date: 20170731
  Transmission Date: 20171127
  Serious: Yes (Hospitalization)
  Sender: FDA-Public Use
  Company Number: CN-ROCHE-1964923

PATIENT
  Age: 47 Year
  Sex: Female
  Weight: 47.5 kg

DRUGS (4)
  1. HERCEPTIN [Suspect]
     Active Substance: TRASTUZUMAB
     Route: 041
     Dates: start: 20170326
  2. HERCEPTIN [Suspect]
     Active Substance: TRASTUZUMAB
     Indication: BREAST CANCER
     Route: 041
     Dates: start: 20170303
  3. TAXOTERE [Suspect]
     Active Substance: DOCETAXEL
     Indication: BREAST CANCER
     Route: 041
     Dates: start: 20170303
  4. TAXOTERE [Suspect]
     Active Substance: DOCETAXEL
     Route: 041
     Dates: start: 20170326

REACTIONS (4)
  - Mouth ulceration [Recovering/Resolving]
  - Fatigue [Unknown]
  - Pyrexia [Recovered/Resolved]
  - Bone marrow failure [Recovering/Resolving]

NARRATIVE: CASE EVENT DATE: 20170309
